FAERS Safety Report 25221602 (Version 2)
Quarter: 2025Q3

REPORT INFORMATION
  Report Type: Spontaneous
  Country: US (occurrence: US)
  Receive Date: 20250421
  Receipt Date: 20250722
  Transmission Date: 20251021
  Serious: No
  Sender: SANOFI AVENTIS
  Company Number: US-SA-2025SA113337

PATIENT
  Age: 76 Year
  Sex: Male

DRUGS (2)
  1. DUPIXENT [Suspect]
     Active Substance: DUPILUMAB
     Indication: Asthma
     Dosage: 300 MG, QOW
     Route: 058
  2. FINASTERIDE [Concomitant]
     Active Substance: FINASTERIDE

REACTIONS (2)
  - Dyspnoea [Unknown]
  - Productive cough [Unknown]

NARRATIVE: CASE EVENT DATE: 20250101
